FAERS Safety Report 11821282 (Version 1)
Quarter: 2015Q4

REPORT INFORMATION
  Report Type: Spontaneous
  Country: US (occurrence: US)
  Receive Date: 20151210
  Receipt Date: 20151210
  Transmission Date: 20160305
  Serious: Yes (Hospitalization)
  Sender: FDA-Public Use
  Company Number: US-JNJFOC-20150309455

PATIENT
  Age: 77 Year
  Sex: Male

DRUGS (13)
  1. PROAIR(SALBUTAMOL SULFATE) [Concomitant]
  2. ATIVAN [Concomitant]
     Active Substance: LORAZEPAM
  3. IMBRUVICA [Suspect]
     Active Substance: IBRUTINIB
     Indication: MANTLE CELL LYMPHOMA
     Route: 048
     Dates: start: 2015
  4. LOSARTAN. [Concomitant]
     Active Substance: LOSARTAN
     Indication: BLOOD PRESSURE ABNORMAL
  5. CRESTOR [Concomitant]
     Active Substance: ROSUVASTATIN CALCIUM
     Indication: BLOOD CHOLESTEROL ABNORMAL
  6. PRILOSEC [Concomitant]
     Active Substance: OMEPRAZOLE MAGNESIUM
  7. HYDROCHLOROTHIAZIDE. [Concomitant]
     Active Substance: HYDROCHLOROTHIAZIDE
     Indication: BLOOD PRESSURE ABNORMAL
  8. TOPROL XL [Concomitant]
     Active Substance: METOPROLOL SUCCINATE
     Indication: BLOOD PRESSURE MEASUREMENT
  9. IBUPROFEN. [Concomitant]
     Active Substance: IBUPROFEN
  10. TAMSULOSIN [Concomitant]
     Active Substance: TAMSULOSIN
  11. ASPIRIN. [Concomitant]
     Active Substance: ASPIRIN
     Dosage: LOW DOSE
  12. MELOXICAM. [Concomitant]
     Active Substance: MELOXICAM
  13. IMBRUVICA [Suspect]
     Active Substance: IBRUTINIB
     Indication: MANTLE CELL LYMPHOMA
     Route: 048
     Dates: start: 20140811, end: 201502

REACTIONS (5)
  - Pyrexia [Unknown]
  - Fatigue [Unknown]
  - Upper respiratory tract infection [Recovering/Resolving]
  - Viral infection [Unknown]
  - Neutropenia [Recovering/Resolving]

NARRATIVE: CASE EVENT DATE: 201502
